FAERS Safety Report 8434361-3 (Version None)
Quarter: 2012Q2

REPORT INFORMATION
  Report Type: 
  Country: None (occurrence: None)
  Receive Date: 20120613
  Receipt Date: 20120607
  Transmission Date: 20120825
  Serious: Yes (Hospitalization, Disabling)
  Sender: FDA-Public Use
  Company Number: US-MERCK-1203USA03314

PATIENT
  Age: 82 Year
  Sex: Female

DRUGS (7)
  1. BONIVA [Suspect]
     Indication: OSTEOPOROSIS
     Route: 048
     Dates: start: 20060201, end: 20080901
  2. ALENDRONATE SODIUM [Suspect]
     Indication: OSTEOPOROSIS
     Route: 048
     Dates: end: 20090101
  3. ALENDRONATE SODIUM [Suspect]
     Indication: OSTEOPENIA
     Route: 048
     Dates: end: 20090101
  4. ACTONEL [Suspect]
     Indication: OSTEOPOROSIS
     Route: 048
     Dates: start: 20080901, end: 20090101
  5. FOSAMAX [Suspect]
     Indication: OSTEOPENIA
     Route: 047
     Dates: start: 20031001, end: 20060201
  6. BONIVA [Suspect]
     Indication: OSTEOPENIA
     Route: 048
     Dates: start: 20060201, end: 20080901
  7. FOSAMAX [Suspect]
     Indication: OSTEOPOROSIS
     Route: 047
     Dates: start: 20031001, end: 20060201

REACTIONS (19)
  - ARTHRITIS BACTERIAL [None]
  - MULTIPLE FRACTURES [None]
  - URINARY TRACT INFECTION [None]
  - OEDEMA [None]
  - HYPONATRAEMIA [None]
  - FALL [None]
  - URETERIC STENOSIS [None]
  - PYELONEPHRITIS [None]
  - PUBIS FRACTURE [None]
  - NODAL OSTEOARTHRITIS [None]
  - OSTEOPOROSIS [None]
  - LOW TURNOVER OSTEOPATHY [None]
  - GASTROOESOPHAGEAL REFLUX DISEASE [None]
  - ROTATOR CUFF SYNDROME [None]
  - CHONDROCALCINOSIS PYROPHOSPHATE [None]
  - PEPTIC ULCER [None]
  - OSTEONECROSIS [None]
  - FEMUR FRACTURE [None]
  - WOUND DRAINAGE [None]
